FAERS Safety Report 12913192 (Version 3)
Quarter: 2016Q4

REPORT INFORMATION
  Report Type: Spontaneous
  Country: JP (occurrence: JP)
  Receive Date: 20161104
  Receipt Date: 20161115
  Transmission Date: 20170207
  Serious: Yes (Other)
  Sender: FDA-Public Use
  Company Number: JP-BAYER-2016-207752

PATIENT
  Age: 62 Year
  Sex: Male

DRUGS (2)
  1. BAYASPIRIN [Suspect]
     Active Substance: ASPIRIN
     Dosage: 100 MG, QD
     Route: 048
     Dates: start: 20150425
  2. HEPARIN [Concomitant]
     Active Substance: HEPARIN SODIUM
     Dosage: 3000 U, QD
     Route: 042

REACTIONS (2)
  - Cerebral infarction [Recovering/Resolving]
  - Haemorrhagic stroke [Recovering/Resolving]

NARRATIVE: CASE EVENT DATE: 20150507
